FAERS Safety Report 8584431-4 (Version None)
Quarter: 2012Q3

REPORT INFORMATION
  Report Type: 
  Country: None (occurrence: None)
  Receive Date: 20120810
  Receipt Date: 20120808
  Transmission Date: 20120928
  Serious: No
  Sender: FDA-Public Use
  Company Number: US-B.I. PHARMACEUTICALS,INC./RIDGEFIELD-2011-BP-21871BP

PATIENT

DRUGS (1)
  1. VIRAMUNE [Suspect]

REACTIONS (1)
  - MEDICATION RESIDUE [None]
